FAERS Safety Report 7100036-6 (Version None)
Quarter: 2010Q4

REPORT INFORMATION
  Report Type: 
  Country: None (occurrence: None)
  Receive Date: 20101112
  Receipt Date: 20100928
  Transmission Date: 20110411
  Serious: No
  Sender: FDA-Public Use
  Company Number: US-BAYER-201021960BCC

PATIENT
  Age: 56 Year
  Sex: Male
  Weight: 159 kg

DRUGS (6)
  1. ALEVE (CAPLET) [Suspect]
     Indication: ARTHRITIS
     Dosage: TOTAL DAILY DOSE: 880 MG  UNIT DOSE: 220 MG
     Route: 048
     Dates: start: 20100701
  2. GLYBURIDE AND METFORMIN HYDROCHLORIDE [Concomitant]
     Route: 065
  3. VYTORIN [Concomitant]
     Route: 065
  4. PLAVIX [Concomitant]
     Route: 065
  5. DIOVAN HCT [Concomitant]
     Route: 065
  6. ACTOS [Concomitant]
     Route: 065

REACTIONS (5)
  - BLISTER [None]
  - ERYTHEMA [None]
  - OEDEMA PERIPHERAL [None]
  - RASH [None]
  - SKIN WARM [None]
